FAERS Safety Report 21239755 (Version 1)
Quarter: 2022Q3

REPORT INFORMATION
  Report Type: Spontaneous
  Country: US (occurrence: US)
  Receive Date: 20220822
  Receipt Date: 20220822
  Transmission Date: 20221027
  Serious: No
  Sender: FDA-Public Use
  Company Number: US-SA-SAC20220816000823

PATIENT
  Sex: Male

DRUGS (1)
  1. DUPIXENT [Suspect]
     Active Substance: DUPILUMAB
     Dosage: 300 MG , OTHER
     Route: 058
     Dates: start: 202202, end: 202206

REACTIONS (5)
  - Peripheral swelling [Unknown]
  - Dry mouth [Unknown]
  - Paraesthesia [Unknown]
  - Lip swelling [Recovering/Resolving]
  - COVID-19 [Unknown]

NARRATIVE: CASE EVENT DATE: 20220501
